FAERS Safety Report 25715744 (Version 1)
Quarter: 2025Q3

REPORT INFORMATION
  Report Type: Spontaneous
  Country: CN (occurrence: CN)
  Receive Date: 20250822
  Receipt Date: 20250822
  Transmission Date: 20251021
  Serious: Yes (Hospitalization)
  Sender: Unknown Manufacturer
  Company Number: CN-ASTRAZENECA-202508CHN006221CN

PATIENT

DRUGS (2)
  1. METOPROLOL SUCCINATE [Suspect]
     Active Substance: METOPROLOL SUCCINATE
     Indication: Hypertension
     Dosage: 47.5 MILLIGRAM, QD
     Route: 048
     Dates: start: 20250715, end: 20250804
  2. MAGNESIUM ISOGLYCYRRHIZINATE [Concomitant]
     Active Substance: MAGNESIUM ISOGLYCYRRHIZINATE
     Dosage: 150 MILLIGRAM, QD
     Route: 042
     Dates: start: 20250801

REACTIONS (2)
  - Liver injury [Unknown]
  - Back pain [Unknown]

NARRATIVE: CASE EVENT DATE: 20250730
